FAERS Safety Report 8617179-8 (Version None)
Quarter: 2012Q3

REPORT INFORMATION
  Report Type: 
  Country: None (occurrence: None)
  Receive Date: 20120823
  Receipt Date: 20120816
  Transmission Date: 20120928
  Serious: Yes (Other)
  Sender: FDA-Public Use
  Company Number: PHHY2012IT071371

PATIENT
  Age: 32 Year
  Sex: Male

DRUGS (2)
  1. AMIODARONE HCL [Suspect]
     Dosage: 540 MG, UNK
  2. AMIODARONE HCL [Suspect]
     Indication: ARRHYTHMIA PROPHYLAXIS
     Dosage: 300 MG, UNK
     Route: 042

REACTIONS (4)
  - BRUGADA SYNDROME [None]
  - ELECTROCARDIOGRAM QT PROLONGED [None]
  - CONDITION AGGRAVATED [None]
  - ELECTROCARDIOGRAM ST SEGMENT ELEVATION [None]
